FAERS Safety Report 6304481-8 (Version None)
Quarter: 2009Q3

REPORT INFORMATION
  Report Type: 
  Country: None (occurrence: None)
  Receive Date: 20090811
  Receipt Date: 20090804
  Transmission Date: 20100115
  Serious: Yes (Hospitalization, Other)
  Sender: FDA-Public Use
  Company Number: JP-ROCHE-606608

PATIENT
  Sex: Female
  Weight: 54 kg

DRUGS (17)
  1. MYCOPHENOLATE MOFETIL [Suspect]
     Route: 048
     Dates: start: 20081212
  2. MEDROL [Suspect]
     Dosage: NOTE: 5 TABLETS DIVIDE INTO 2 DOSES.
     Route: 048
     Dates: start: 20081212, end: 20090114
  3. MEDROL [Suspect]
     Route: 048
     Dates: start: 20090115
  4. NEORAL [Suspect]
     Dosage: NOTE: 125-300 MG
     Route: 048
     Dates: start: 20081209, end: 20090621
  5. NEORAL [Suspect]
     Route: 048
     Dates: start: 20090622
  6. PARIET [Concomitant]
     Route: 048
     Dates: start: 20081209
  7. FLUMARIN [Concomitant]
     Dosage: ROUTE: INTRAVENOUS (NOT OTHERWISE SPECIFIED).
     Route: 042
     Dates: start: 20081212
  8. OMEPRAL [Concomitant]
     Dosage: ROUTE: INTRAVENOUS (NOT OTHERWISE SPECIFIED).
     Route: 042
     Dates: start: 20081212
  9. MICARDIS [Concomitant]
     Route: 048
     Dates: start: 20081213, end: 20081217
  10. MICARDIS [Concomitant]
     Route: 048
     Dates: start: 20081218
  11. VENOGLOBULIN [Concomitant]
     Dosage: ROUTE: INTRAVENOUS (NOT OTHERWISE SPECIFIED).
     Route: 042
     Dates: start: 20081213
  12. ROPIVACAINE HYDROCHLORIDE [Concomitant]
     Dosage: DRUG: ANAPEINE. ROUTE: INTRAVENOUS (NOT OTHERWISE SPECIFIED). TAKEN AS NEEDED
     Route: 042
     Dates: start: 20081213
  13. ROPIVACAINE HYDROCHLORIDE [Concomitant]
     Route: 008
     Dates: start: 20081213
  14. FENTANYL [Concomitant]
     Dosage: ROUTE: EPIDURAL
     Route: 008
     Dates: start: 20081213
  15. DROLEPTAN [Concomitant]
     Dosage: ROUTE: EPIDURAL
     Route: 008
     Dates: start: 20081213
  16. TETRAMIDE [Concomitant]
     Dosage: TAKEN AS NEEDED.
     Route: 048
     Dates: start: 20081215
  17. AMLODIPINE BESILATE [Concomitant]
     Route: 048
     Dates: start: 20090126

REACTIONS (2)
  - HAEMATURIA [None]
  - POST PROCEDURAL HAEMORRHAGE [None]
